FAERS Safety Report 5962513-0 (Version None)
Quarter: 2008Q4

REPORT INFORMATION
  Report Type: 
  Country: None (occurrence: None)
  Receive Date: 20081121
  Receipt Date: 20081116
  Transmission Date: 20090506
  Serious: Yes (Death, Hospitalization)
  Sender: FDA-Public Use
  Company Number: PHHY2008CA28180

PATIENT
  Sex: Female

DRUGS (10)
  1. EXELON [Suspect]
     Indication: DEMENTIA ALZHEIMER'S TYPE
     Dosage: 12 MG, QD
     Route: 048
     Dates: start: 20080314, end: 20081107
  2. SYNTHROID [Concomitant]
     Dosage: 75 MG/DAY
     Route: 048
     Dates: start: 20080929
  3. NITRODERM [Concomitant]
     Dosage: 0.8 MG/DAY
  4. GLUCOPHAGE [Concomitant]
     Dosage: 2000 MG/DAY
     Route: 048
     Dates: start: 20080929
  5. SECTRAL [Concomitant]
     Dosage: 200 MG/DAY
  6. LASIX [Concomitant]
     Dosage: 20 MG/DAY
     Route: 048
     Dates: start: 20080915
  7. LIPITOR [Concomitant]
     Dosage: 10 MG AT BED TIME
  8. COLACE [Concomitant]
     Dosage: 200 MG/DAY ; 2 TABLETS/DAY
     Route: 048
  9. ASPIRIN [Concomitant]
     Dosage: 80 MG/DAY
  10. CELEXA [Concomitant]
     Dosage: 30 MG/DAY

REACTIONS (3)
  - DEATH [None]
  - DIARRHOEA [None]
  - HYPERPYREXIA [None]
